FAERS Safety Report 7025504-7 (Version None)
Quarter: 2010Q4

REPORT INFORMATION
  Report Type: 
  Country: None (occurrence: None)
  Receive Date: 20101001
  Receipt Date: 20100922
  Transmission Date: 20110411
  Serious: Yes (Hospitalization, Other)
  Sender: FDA-Public Use
  Company Number: AU-AMGEN-QUU440322

PATIENT
  Sex: Male
  Weight: 76 kg

DRUGS (19)
  1. ARANESP [Suspect]
     Indication: RENAL FAILURE CHRONIC
     Route: 058
     Dates: start: 20060619
  2. WARFARIN SODIUM [Suspect]
  3. ASPIRIN [Suspect]
  4. AZITHROMYCIN [Concomitant]
  5. PREDNISOLONE [Concomitant]
  6. VANCOMYCIN [Concomitant]
     Dates: start: 20100914, end: 20100924
  7. SEVELAMER [Concomitant]
  8. SULFAMETHOXAZOLE AND TRIMETHOPRIM [Concomitant]
  9. AMLODIPINE [Concomitant]
  10. TICARCILLIN [Concomitant]
     Dates: start: 20100914, end: 20100924
  11. CLAVULANATE POTASSIUM [Concomitant]
     Dates: start: 20100914, end: 20100924
  12. SALBUTAMOL [Concomitant]
  13. TEMAZEPAM [Concomitant]
  14. RISPERIDONE [Concomitant]
  15. REBOXETINE [Concomitant]
  16. SERTRALINE HYDROCHLORIDE [Concomitant]
  17. OMEPRAZOLE [Concomitant]
  18. DOCUSATE [Concomitant]
  19. SENNOSIDE [Concomitant]

REACTIONS (3)
  - DRUG INEFFECTIVE [None]
  - HAEMOGLOBIN DECREASED [None]
  - PULMONARY HAEMORRHAGE [None]
